FAERS Safety Report 6188899-2 (Version None)
Quarter: 2009Q2

REPORT INFORMATION
  Report Type: 
  Country: None (occurrence: None)
  Receive Date: 20090513
  Receipt Date: 20090505
  Transmission Date: 20091009
  Serious: Yes (Other)
  Sender: FDA-Public Use
  Company Number: PHHY2009BR17274

PATIENT
  Sex: Female

DRUGS (2)
  1. RASILEZ [Suspect]
     Dosage: WHEN SHE WENT ON A DIET, SHE USED RASILEZ 150MG
  2. RASILEZ [Suspect]
     Dosage: WHEN SHE ATE A LOT OF SALTY FOOD, SHE USED RASILEZ 300MG

REACTIONS (4)
  - APPENDICECTOMY [None]
  - APPENDICITIS [None]
  - BLOOD PRESSURE FLUCTUATION [None]
  - TREATMENT NONCOMPLIANCE [None]
